FAERS Safety Report 7201249-5 (Version None)
Quarter: 2010Q4

REPORT INFORMATION
  Report Type: 
  Country: None (occurrence: None)
  Receive Date: 20101229
  Receipt Date: 20101222
  Transmission Date: 20110411
  Serious: Yes (Death, Other)
  Sender: FDA-Public Use
  Company Number: PHHY2010US86876

PATIENT
  Age: 56 Year
  Sex: Female

DRUGS (7)
  1. PREDNISONE [Suspect]
  2. CYCLOSPORINE [Suspect]
  3. AZATHIOPRINE [Suspect]
  4. MYCOPHENOLATE MOFETIL [Suspect]
  5. SIROLIMUS [Suspect]
  6. VORICONAZOLE [Suspect]
     Indication: ASPERGILLOSIS
     Dosage: 200 MG, BID
     Dates: start: 20040101
  7. VORICONAZOLE [Suspect]
     Dosage: 300 MG, BID
     Dates: start: 20080101

REACTIONS (9)
  - ACTINIC KERATOSIS [None]
  - ASPERGILLOSIS [None]
  - DEATH [None]
  - LUNG NEOPLASM [None]
  - LYMPHADENOPATHY [None]
  - PHOTODERMATOSIS [None]
  - SKIN CANCER [None]
  - SQUAMOUS CELL CARCINOMA [None]
  - UPPER LIMB FRACTURE [None]
